FAERS Safety Report 4309845-X (Version None)
Quarter: 2004Q1

REPORT INFORMATION
  Report Type: 
  Country: None (occurrence: None)
  Receive Date: 20040227
  Receipt Date: 20040122
  Transmission Date: 20041129
  Serious: No
  Sender: FDA-Public Use
  Company Number: FABR-10445

PATIENT
  Age: 43 Year
  Sex: Male
  Weight: 60.782 kg

DRUGS (7)
  1. FABRAZYME [Suspect]
     Indication: FABRY'S DISEASE
     Dosage: 70 MG Q2WKS IV
     Dates: start: 20030715, end: 20031021
  2. FABRAZYME [Suspect]
     Indication: FABRY'S DISEASE
     Dosage: 70 MG Q2WKS
     Dates: start: 20031209
  3. ZOFRAN [Concomitant]
  4. PANCRELIPASE [Concomitant]
  5. METOCLOPRAMIDE [Concomitant]
  6. PERCOCET [Concomitant]
  7. PLENDIL [Concomitant]

REACTIONS (2)
  - ABDOMINAL DISCOMFORT [None]
  - VOMITING [None]
